FAERS Safety Report 22380182 (Version 2)
Quarter: 2023Q4

REPORT INFORMATION
  Report Type: Spontaneous
  Country: US (occurrence: US)
  Receive Date: 20230529
  Receipt Date: 20231115
  Transmission Date: 20240110
  Serious: Yes (Other)
  Sender: FDA-Public Use
  Company Number: US-BRISTOL-MYERS SQUIBB COMPANY-2023-072755

PATIENT
  Age: 69 Year
  Sex: Male

DRUGS (1)
  1. CAMZYOS [Suspect]
     Active Substance: MAVACAMTEN
     Indication: Hypertrophic cardiomyopathy
     Dosage: TAKE ONCE CAPSULE BY MOUTH ONCE DAILY
     Route: 048

REACTIONS (3)
  - Craniofacial fracture [Unknown]
  - Fall [Unknown]
  - Gout [Unknown]

NARRATIVE: CASE EVENT DATE: 20230521
